FAERS Safety Report 14694472 (Version 6)
Quarter: 2018Q4

REPORT INFORMATION
  Report Type: Report from Study
  Country: US (occurrence: US)
  Receive Date: 20180329
  Receipt Date: 20181129
  Transmission Date: 20190204
  Serious: Yes (Hospitalization, Other)
  Sender: FDA-Public Use
  Company Number: US-ROCHE-2093346

PATIENT
  Age: 68 Year
  Sex: Male

DRUGS (4)
  1. VEMURAFENIB. [Suspect]
     Active Substance: VEMURAFENIB
     Indication: ANAPLASTIC THYROID CANCER
     Dosage: 960 MG BY MOUTH TWICE A DAY (DAY 1-21). VEMURAFENIB DOSE REDUCED TO 720 MG TWICE A DAY (AT CYCLE 1 D
     Route: 048
  2. COBIMETINIB. [Suspect]
     Active Substance: COBIMETINIB
     Indication: ANAPLASTIC THYROID CANCER
     Dosage: 60 MG ORAL EVERY DAY (DAY 1-21) AS PER PROTOCOL
     Route: 048
  3. BEVACIZUMAB. [Suspect]
     Active Substance: BEVACIZUMAB
     Indication: ANAPLASTIC THYROID CANCER
     Dosage: IN 21 DAYS CYCLE
     Route: 042
  4. ATEZOLIZUMAB. [Suspect]
     Active Substance: ATEZOLIZUMAB
     Indication: ANAPLASTIC THYROID CANCER
     Dosage: 840 MG, DAY 1 AND  DAY 15 IN 28 DAY CYCLE (AS PER PROTOCOL)
     Route: 042

REACTIONS (4)
  - Hepatic infection [Recovering/Resolving]
  - Keratoacanthoma [Unknown]
  - Dehydration [Recovered/Resolved]
  - Aspartate aminotransferase increased [Recovered/Resolved]

NARRATIVE: CASE EVENT DATE: 20180315
